FAERS Safety Report 4674199-6 (Version None)
Quarter: 2005Q2

REPORT INFORMATION
  Report Type: 
  Country: None (occurrence: None)
  Receive Date: 20050524
  Receipt Date: 20050505
  Transmission Date: 20051028
  Serious: Yes (Other)
  Sender: FDA-Public Use
  Company Number: US_0505117102

PATIENT
  Age: 19 Month
  Sex: Male
  Weight: 9 kg

DRUGS (2)
  1. STRATTERA [Suspect]
     Dosage: 54 MG
  2. PHENOBARBITAL [Concomitant]

REACTIONS (4)
  - ACCIDENTAL DRUG INTAKE BY CHILD [None]
  - ACCIDENTAL OVERDOSE [None]
  - MYOCLONUS [None]
  - SOMNOLENCE [None]
